FAERS Safety Report 10905438 (Version 4)
Quarter: 2015Q2

REPORT INFORMATION
  Report Type: Spontaneous
  Country: DE (occurrence: DE)
  Receive Date: 20150311
  Receipt Date: 20150504
  Transmission Date: 20150821
  Serious: Yes (Hospitalization)
  Sender: FDA-Public Use
  Company Number: PHHY2015DE023225

PATIENT
  Sex: Male
  Weight: 95 kg

DRUGS (4)
  1. EXFORGE HCT [Suspect]
     Active Substance: AMLODIPINE BESYLATE\HYDROCHLOROTHIAZIDE\VALSARTAN
     Indication: AORTIC VALVE INCOMPETENCE
  2. EXFORGE HCT [Suspect]
     Active Substance: AMLODIPINE BESYLATE\HYDROCHLOROTHIAZIDE\VALSARTAN
     Indication: HYPERTENSIVE HEART DISEASE
     Dosage: 1 DF, BID
     Route: 065
     Dates: start: 200901, end: 20150219
  3. ADENURIC [Concomitant]
     Active Substance: FEBUXOSTAT
     Indication: GOUT
     Dosage: 1 DF, QD
     Route: 065
     Dates: start: 200901
  4. CARVEDILOL. [Concomitant]
     Active Substance: CARVEDILOL
     Indication: HYPERTENSIVE HEART DISEASE
     Dosage: 1 DF, BID
     Route: 065
     Dates: start: 200901, end: 20150219

REACTIONS (8)
  - Coordination abnormal [Recovering/Resolving]
  - Heart rate irregular [Recovered/Resolved]
  - Extrasystoles [Recovered/Resolved]
  - Blood pressure increased [Unknown]
  - Gait disturbance [Recovering/Resolving]
  - Abasia [Recovering/Resolving]
  - Speech disorder [Recovered/Resolved]
  - Dizziness [Recovering/Resolving]

NARRATIVE: CASE EVENT DATE: 201404
